FAERS Safety Report 8055828-6 (Version None)
Quarter: 2012Q1

REPORT INFORMATION
  Report Type: 
  Country: None (occurrence: None)
  Receive Date: 20120119
  Receipt Date: 20120119
  Transmission Date: 20120608
  Serious: Yes (Hospitalization)
  Sender: FDA-Public Use
  Company Number: None

PATIENT
  Sex: Male
  Weight: 85.275 kg

DRUGS (1)
  1. ROSUVASTATIN [Suspect]
     Dosage: 10 MG.
     Route: 048
     Dates: start: 20111206, end: 20120114

REACTIONS (3)
  - MYALGIA [None]
  - ARTHRALGIA [None]
  - RHABDOMYOLYSIS [None]
